FAERS Safety Report 5535320-0 (Version None)
Quarter: 2007Q4

REPORT INFORMATION
  Report Type: 
  Country: None (occurrence: None)
  Receive Date: 20071204
  Receipt Date: 20071119
  Transmission Date: 20080405
  Serious: Yes (Hospitalization)
  Sender: FDA-Public Use
  Company Number: 230466J07USA

PATIENT
  Age: 59 Year
  Sex: Female
  Weight: 77.1115 kg

DRUGS (12)
  1. REBIF [Suspect]
     Indication: MULTIPLE SCLEROSIS
     Dosage: 44 MCG, 3 IN 1 WEEKS, SUBCUTANEOUS
     Route: 058
     Dates: start: 20060721
  2. VERAPAMIL (VERAPAMIL/00014301/) [Concomitant]
  3. NEXIUM [Concomitant]
  4. LORTAB [Concomitant]
  5. COUMADIN [Concomitant]
  6. TRICOR [Concomitant]
  7. AMANTADINE HCL [Concomitant]
  8. NEURONTIN [Concomitant]
  9. ADVAIR (SERETIDE) [Concomitant]
  10. ALLEGRA (FEXOFENADINE HYDROCHLORIDE) [Concomitant]
  11. ZOLOFT [Concomitant]
  12. SOLU-MEDROL [Concomitant]

REACTIONS (3)
  - DEHYDRATION [None]
  - DIARRHOEA [None]
  - PANCREATITIS [None]
